FAERS Safety Report 14093397 (Version 1)
Quarter: 2017Q4

REPORT INFORMATION
  Report Type: Spontaneous
  Country: US (occurrence: US)
  Receive Date: 20171016
  Receipt Date: 20171016
  Transmission Date: 20180321
  Serious: Yes (Life-Threatening, Hospitalization, Other)
  Sender: FDA-Public Use
  Company Number: None

PATIENT
  Age: 52 Year
  Sex: Male
  Weight: 79 kg

DRUGS (5)
  1. ROSUVASTATIN. [Suspect]
     Active Substance: ROSUVASTATIN
     Indication: HYPERLIPIDAEMIA
     Route: 048
  2. LEVOTHYROXINE. [Concomitant]
     Active Substance: LEVOTHYROXINE
  3. AMLODIPINE [Concomitant]
     Active Substance: AMLODIPINE BESYLATE
  4. ROSUVASTATIN. [Suspect]
     Active Substance: ROSUVASTATIN
     Indication: CORONARY ARTERY DISEASE
     Route: 048
  5. CARVEDILOL. [Concomitant]
     Active Substance: CARVEDILOL

REACTIONS (12)
  - Hyperkalaemia [None]
  - Pancreatitis acute [None]
  - Renal failure [None]
  - Muscular weakness [None]
  - Retching [None]
  - Condition aggravated [None]
  - Dialysis [None]
  - Nausea [None]
  - Acute kidney injury [None]
  - Malaise [None]
  - Fatigue [None]
  - Hepatitis [None]

NARRATIVE: CASE EVENT DATE: 20171013
